FAERS Safety Report 7304406-2 (Version None)
Quarter: 2011Q1

REPORT INFORMATION
  Report Type: 
  Country: None (occurrence: None)
  Receive Date: 20110221
  Receipt Date: 20110209
  Transmission Date: 20110831
  Serious: Yes (Other)
  Sender: FDA-Public Use
  Company Number: US-ELI_LILLY_AND_COMPANY-US201007005335

PATIENT
  Sex: Female

DRUGS (5)
  1. FORTEO [Suspect]
     Indication: OSTEOPOROSIS
     Dosage: 20 UG, DAILY (1/D)
     Route: 058
     Dates: start: 20100623
  2. ADVAIR [Concomitant]
  3. PROCARDIA [Concomitant]
  4. ALBUTEROL [Concomitant]
  5. FORTEO [Suspect]
     Dosage: 20 UG, DAILY (1/D)
     Route: 065

REACTIONS (9)
  - SQUAMOUS CELL CARCINOMA [None]
  - HAND FRACTURE [None]
  - FATIGUE [None]
  - THROAT IRRITATION [None]
  - NEOPLASM SKIN [None]
  - MUSCULOSKELETAL STIFFNESS [None]
  - DRY SKIN [None]
  - SCAB [None]
  - PAIN IN EXTREMITY [None]
